FAERS Safety Report 12562497 (Version 1)
Quarter: 2016Q3

REPORT INFORMATION
  Report Type: Spontaneous
  Country: US (occurrence: US)
  Receive Date: 20160715
  Receipt Date: 20160715
  Transmission Date: 20161109
  Serious: No
  Sender: FDA-Public Use
  Company Number: US-NOVOPROD-487124

PATIENT
  Age: 65 Year
  Sex: Male

DRUGS (1)
  1. TRESIBA [Suspect]
     Active Substance: INSULIN DEGLUDEC
     Indication: PRODUCT USED FOR UNKNOWN INDICATION
     Dosage: 10 U
     Route: 058
     Dates: end: 20160328

REACTIONS (5)
  - Dyspnoea [Recovered/Resolved]
  - Anxiety [Unknown]
  - Throat tightness [Unknown]
  - Blood glucose increased [Unknown]
  - Dysphagia [Recovered/Resolved]
